FAERS Safety Report 11475292 (Version 1)
Quarter: 2015Q3

REPORT INFORMATION
  Report Type: Spontaneous
  Country: US (occurrence: None)
  Receive Date: 20150902
  Receipt Date: 20150902
  Transmission Date: 20151125
  Serious: Yes (Hospitalization)
  Sender: FDA-Public Use
  Company Number: A-US2015-115561

PATIENT
  Age: 63 Year
  Sex: Male

DRUGS (14)
  1. SILDENAFIL (SILDENAFIL) [Concomitant]
     Active Substance: SILDENAFIL
  2. PLAVIX [Concomitant]
     Active Substance: CLOPIDOGREL BISULFATE
  3. FUROSEMIDE (FUROSEMIDE) [Concomitant]
     Active Substance: FUROSEMIDE
  4. VITAMIN B12 (VITAMIN B12 NOS) [Concomitant]
  5. ZOLPIDEM (ZOLPIDEM) [Concomitant]
     Active Substance: ZOLPIDEM TARTRATE
  6. ALDACTONE [Concomitant]
     Active Substance: SPIRONOLACTONE
  7. METOPROLOL (METOPROLOL) [Concomitant]
     Active Substance: METOPROLOL
  8. LASIX [Concomitant]
     Active Substance: FUROSEMIDE
  9. VITAMIN C (ASCORBIC ACID, SODIUM ASCORBATE) [Concomitant]
  10. LISINOPRIL (LISINOPRIL) [Concomitant]
     Active Substance: LISINOPRIL
  11. ASPIRIN (ACETYLSALICYLIC ACID) [Concomitant]
     Active Substance: ASPIRIN
  12. VELETRI [Suspect]
     Active Substance: EPOPROSTENOL
     Indication: PULMONARY ARTERIAL HYPERTENSION
     Dosage: 40 NG/KG, PER MIN
     Route: 042
     Dates: start: 20141016
  13. LIPITOR [Concomitant]
     Active Substance: ATORVASTATIN CALCIUM
  14. GABAPENTIN (GABAPENTIN) [Concomitant]
     Active Substance: GABAPENTIN

REACTIONS (1)
  - Dyspnoea [None]
